FAERS Safety Report 12398644 (Version 1)
Quarter: 2016Q2

REPORT INFORMATION
  Report Type: Spontaneous
  Country: FR (occurrence: FR)
  Receive Date: 20160524
  Receipt Date: 20160524
  Transmission Date: 20160815
  Serious: Yes (Hospitalization)
  Sender: FDA-Public Use
  Company Number: FR-PFIZER INC-2016267922

PATIENT
  Age: 56 Year
  Sex: Male
  Weight: 57 kg

DRUGS (7)
  1. OXALIPLATIN. [Suspect]
     Active Substance: OXALIPLATIN
     Indication: ADENOCARCINOMA OF COLON
     Dosage: 110 MG, CYCLIC
     Route: 041
  2. ZOPHREN /00955302/ [Concomitant]
     Active Substance: ONDANSETRON
     Dosage: 8 MG, UNK
     Route: 041
  3. EMEND (FOSAPREPITANT DIMEGLUMINE) [Concomitant]
     Active Substance: FOSAPREPITANT DIMEGLUMINE
     Dosage: 125 MG, UNK
     Route: 048
  4. LEVOFOLINATE DE CALCIUM [Concomitant]
     Indication: ADENOCARCINOMA OF COLON
     Dosage: 340 MG, UNK
     Route: 041
  5. FLUOROURACILE ACCORD [Suspect]
     Active Substance: FLUOROURACIL
     Indication: ADENOCARCINOMA OF COLON
     Dosage: 4100 MG, CYCLIC
     Route: 041
  6. METHYLPREDNISOLONE MYLAN /00049602/ [Concomitant]
     Active Substance: METHYLPREDNISOLONE SODIUM SUCCINATE
     Dosage: 60 MG, UNK
  7. VECTIBIX [Suspect]
     Active Substance: PANITUMUMAB
     Indication: ADENOCARCINOMA OF COLON
     Dosage: 310 MG, CYCLIC
     Route: 041

REACTIONS (7)
  - Mucosal inflammation [Recovered/Resolved]
  - Nausea [Recovered/Resolved]
  - Neutropenia [Recovered/Resolved]
  - Acute prerenal failure [Recovered/Resolved]
  - Dehydration [Unknown]
  - Gastrointestinal disorder [Unknown]
  - Folliculitis [Recovered/Resolved]

NARRATIVE: CASE EVENT DATE: 20151202
